FAERS Safety Report 20830895 (Version 1)
Quarter: 2022Q2

REPORT INFORMATION
  Report Type: Report from Study
  Country: CN (occurrence: CN)
  Receive Date: 20220515
  Receipt Date: 20220515
  Transmission Date: 20220720
  Serious: Yes (Other)
  Sender: FDA-Public Use
  Company Number: CN-BRISTOL-MYERS SQUIBB COMPANY-2022-037493

PATIENT
  Age: 71 Year
  Sex: Male

DRUGS (20)
  1. NIVOLUMAB [Suspect]
     Active Substance: NIVOLUMAB
     Indication: Non-small cell lung cancer
     Route: 042
     Dates: start: 20210621
  2. NIVOLUMAB [Suspect]
     Active Substance: NIVOLUMAB
     Route: 042
     Dates: start: 20210712
  3. NIVOLUMAB [Suspect]
     Active Substance: NIVOLUMAB
     Route: 042
     Dates: start: 20211011
  4. NIVOLUMAB [Suspect]
     Active Substance: NIVOLUMAB
     Route: 065
     Dates: start: 20220105
  5. NIVOLUMAB [Suspect]
     Active Substance: NIVOLUMAB
     Route: 065
     Dates: start: 20220124
  6. NIVOLUMAB [Suspect]
     Active Substance: NIVOLUMAB
     Route: 065
     Dates: start: 20220214
  7. NIVOLUMAB [Suspect]
     Active Substance: NIVOLUMAB
     Route: 065
     Dates: start: 20220307
  8. CATEQUENTINIB [Suspect]
     Active Substance: CATEQUENTINIB
     Indication: Non-small cell lung cancer
     Dosage: ANLOTINIB (12 MG PO QD) WAS TAKEN FOR 2 WEEKS AND STOPPED FOR 1 WEEK
     Route: 048
     Dates: start: 20210621, end: 20210705
  9. CATEQUENTINIB [Suspect]
     Active Substance: CATEQUENTINIB
     Route: 048
     Dates: start: 20210712, end: 20210726
  10. CATEQUENTINIB [Suspect]
     Active Substance: CATEQUENTINIB
     Route: 065
     Dates: start: 20211011, end: 20211025
  11. CATEQUENTINIB [Suspect]
     Active Substance: CATEQUENTINIB
     Route: 048
     Dates: start: 20211101, end: 20211115
  12. CATEQUENTINIB [Suspect]
     Active Substance: CATEQUENTINIB
     Route: 048
     Dates: start: 20211122, end: 20211206
  13. CATEQUENTINIB [Suspect]
     Active Substance: CATEQUENTINIB
     Route: 048
     Dates: start: 20220214, end: 20220228
  14. CATEQUENTINIB [Suspect]
     Active Substance: CATEQUENTINIB
     Route: 048
     Dates: start: 20220307, end: 20220321
  15. NIVOLUMAB\RELATLIMAB-RMBW [Suspect]
     Active Substance: NIVOLUMAB\RELATLIMAB-RMBW
     Route: 042
     Dates: start: 20210712
  16. NIVOLUMAB\RELATLIMAB-RMBW [Suspect]
     Active Substance: NIVOLUMAB\RELATLIMAB-RMBW
     Route: 042
     Dates: start: 20211011
  17. NIVOLUMAB\RELATLIMAB-RMBW [Suspect]
     Active Substance: NIVOLUMAB\RELATLIMAB-RMBW
     Route: 065
     Dates: start: 20220105
  18. NIVOLUMAB\RELATLIMAB-RMBW [Suspect]
     Active Substance: NIVOLUMAB\RELATLIMAB-RMBW
     Route: 065
     Dates: start: 20220124
  19. NIVOLUMAB\RELATLIMAB-RMBW [Suspect]
     Active Substance: NIVOLUMAB\RELATLIMAB-RMBW
     Route: 065
     Dates: start: 20220214
  20. NIVOLUMAB\RELATLIMAB-RMBW [Suspect]
     Active Substance: NIVOLUMAB\RELATLIMAB-RMBW
     Route: 065
     Dates: start: 20220307

REACTIONS (2)
  - Pneumonia bacterial [Unknown]
  - Transplant rejection [Unknown]
